FAERS Safety Report 24266759 (Version 1)
Quarter: 2024Q3

REPORT INFORMATION
  Report Type: Spontaneous
  Country: US (occurrence: US)
  Receive Date: 20240830
  Receipt Date: 20240830
  Transmission Date: 20241017
  Serious: Yes (Other)
  Sender: STRIDES
  Company Number: US-STRIDES ARCOLAB LIMITED-2024SP008729

PATIENT
  Sex: Female

DRUGS (14)
  1. OLANZAPINE [Suspect]
     Active Substance: OLANZAPINE
     Indication: Autism spectrum disorder
     Dosage: UNK
     Route: 065
  2. OLANZAPINE [Suspect]
     Active Substance: OLANZAPINE
     Indication: Catatonia
  3. METHYLPHENIDATE [Suspect]
     Active Substance: METHYLPHENIDATE
     Indication: Autism spectrum disorder
     Dosage: UNK
     Route: 065
  4. METHYLPHENIDATE [Suspect]
     Active Substance: METHYLPHENIDATE
     Indication: Catatonia
  5. ZOLPIDEM [Suspect]
     Active Substance: ZOLPIDEM TARTRATE
     Indication: Autism spectrum disorder
     Dosage: UNK
     Route: 065
  6. ZOLPIDEM [Suspect]
     Active Substance: ZOLPIDEM TARTRATE
     Indication: Catatonia
  7. HYDROXYZINE HYDROCHLORIDE [Suspect]
     Active Substance: HYDROXYZINE HYDROCHLORIDE
     Indication: Autism spectrum disorder
     Dosage: UNK
     Route: 065
  8. HYDROXYZINE HYDROCHLORIDE [Suspect]
     Active Substance: HYDROXYZINE HYDROCHLORIDE
     Indication: Catatonia
  9. RISPERIDONE [Suspect]
     Active Substance: RISPERIDONE
     Indication: Autism spectrum disorder
     Dosage: UNK
     Route: 065
  10. RISPERIDONE [Suspect]
     Active Substance: RISPERIDONE
     Indication: Catatonia
  11. CLONIDINE [Suspect]
     Active Substance: CLONIDINE
     Indication: Autism spectrum disorder
     Dosage: UNK
     Route: 065
  12. CLONIDINE [Suspect]
     Active Substance: CLONIDINE
     Indication: Catatonia
  13. GUANFACINE [Suspect]
     Active Substance: GUANFACINE
     Indication: Autism spectrum disorder
     Dosage: UNK
     Route: 065
  14. GUANFACINE [Suspect]
     Active Substance: GUANFACINE
     Indication: Catatonia

REACTIONS (2)
  - Treatment failure [Unknown]
  - Off label use [Unknown]
